APPROVED DRUG PRODUCT: SODIUM CHLORIDE 0.9% IN PLASTIC THERMOJECT KIT FOR CARDIAC OUTPUT USE
Active Ingredient: SODIUM CHLORIDE
Strength: 90MG/10ML (9MG/ML)
Dosage Form/Route: SOLUTION;INJECTION
Application: N019217 | Product #001
Applicant: ICU MEDICAL INC
Approved: Jul 13, 1984 | RLD: Yes | RS: No | Type: DISCN